FAERS Safety Report 8895560 (Version 2)
Quarter: 2012Q4

REPORT INFORMATION
  Report Type: 
  Country: US (occurrence: US)
  Receive Date: 20121107
  Receipt Date: 20121211
  Transmission Date: 20130627
  Serious: Yes (Hospitalization)
  Sender: FDA-Public Use
  Company Number: US-BAXTER-2012BAX022089

PATIENT
  Age: 8 None
  Sex: Male
  Weight: 47.7 kg

DRUGS (5)
  1. ADVATE [Suspect]
     Indication: HEMOPHILIA A
     Dosage: ACCORDING TO WEIGHT
     Dates: start: 200505
  2. ADVATE [Suspect]
     Dosage: 813 UNITS
     Dates: start: 201209
  3. ADVATE [Suspect]
     Dosage: 813 UNITS
     Dates: start: 20121002
  4. ADVATE [Suspect]
     Dosage: 813 UNITS
     Dates: start: 20121004
  5. ADVATE [Suspect]
     Dosage: 813 UNITS
     Dates: start: 20121024

REACTIONS (5)
  - Device related infection [Recovering/Resolving]
  - Pantoea agglomerans infection [Unknown]
  - Chills [Recovered/Resolved]
  - Pyrexia [Recovered/Resolved]
  - Headache [Recovered/Resolved]
